FAERS Safety Report 9685645 (Version 1)
Quarter: 2013Q4

REPORT INFORMATION
  Report Type: Spontaneous
  Country: US (occurrence: US)
  Receive Date: 20131113
  Receipt Date: 20131113
  Transmission Date: 20140711
  Serious: No
  Sender: FDA-Public Use
  Company Number: US-GLAXOSMITHKLINE-A1034604A

PATIENT
  Age: 73 Year
  Sex: Female
  Weight: 108.2 kg

DRUGS (14)
  1. COREG [Suspect]
     Indication: HYPERTENSION
     Dosage: 3.125MG TWICE PER DAY
     Route: 065
  2. FLOVENT [Suspect]
     Indication: COUGH
     Dosage: 2PUFF TWICE PER DAY
     Route: 055
     Dates: start: 20130710, end: 20130722
  3. CARVEDILOL [Suspect]
     Indication: HYPERTENSION
     Dosage: 3.125MG TWICE PER DAY
     Route: 048
  4. PREVACID [Concomitant]
  5. GLYBURIDE [Concomitant]
  6. HCTZ [Concomitant]
  7. CELEBREX [Concomitant]
  8. METFORMIN [Concomitant]
  9. PLAVIX [Concomitant]
  10. XANAX [Concomitant]
  11. VICODIN [Concomitant]
  12. SILVADENE [Concomitant]
  13. KETOCONAZOLE [Concomitant]
  14. DIAZEPAM [Concomitant]

REACTIONS (9)
  - Cough [Not Recovered/Not Resolved]
  - Drug ineffective [Unknown]
  - Oropharyngeal pain [Unknown]
  - Off label use [Unknown]
  - Dyspnoea [Unknown]
  - Chronic sinusitis [Unknown]
  - Upper-airway cough syndrome [Unknown]
  - Rhinitis allergic [Unknown]
  - Dyspnoea exertional [Unknown]
